FAERS Safety Report 25163123 (Version 1)
Quarter: 2025Q2

REPORT INFORMATION
  Report Type: Spontaneous
  Country: IN (occurrence: IN)
  Receive Date: 20250404
  Receipt Date: 20250404
  Transmission Date: 20250716
  Serious: Yes (Hospitalization)
  Sender: MEDEXUS PHARMA
  Company Number: IN-MEDEXUS PHARMA, INC.-2025MED00077

PATIENT
  Age: 35 Year
  Sex: Male

DRUGS (1)
  1. METHOTREXATE [Suspect]
     Active Substance: METHOTREXATE
     Indication: Psoriasis
     Dosage: 15 MG, 1X/DAY

REACTIONS (6)
  - Hyperbilirubinaemia [Recovered/Resolved]
  - Pancytopenia [Recovered/Resolved]
  - Stomatitis [Recovered/Resolved]
  - Skin erosion [Recovered/Resolved]
  - Cellulitis [Recovered/Resolved]
  - Toxicity to various agents [Recovered/Resolved]
